FAERS Safety Report 7010360-3 (Version None)
Quarter: 2010Q3

REPORT INFORMATION
  Report Type: 
  Country: None (occurrence: None)
  Receive Date: 20100923
  Receipt Date: 20100915
  Transmission Date: 20110219
  Serious: Yes (Other)
  Sender: FDA-Public Use
  Company Number: FR-BAXTER-2010BH023865

PATIENT

DRUGS (2)
  1. CYCLOPHOSPHAMIDE [Suspect]
     Indication: METASTATIC MALIGNANT MELANOMA
     Route: 048
  2. CYCLOPHOSPHAMIDE [Suspect]
     Route: 048

REACTIONS (1)
  - DRUG TOXICITY [None]
